FAERS Safety Report 6916409-8 (Version None)
Quarter: 2010Q3

REPORT INFORMATION
  Report Type: 
  Country: None (occurrence: None)
  Receive Date: 20100810
  Receipt Date: 20100802
  Transmission Date: 20110219
  Serious: Yes (Death, Hospitalization)
  Sender: FDA-Public Use
  Company Number: IT-MPIJNJ-2010-03851

PATIENT

DRUGS (3)
  1. VELCADE [Suspect]
     Dosage: 1.65 MG/M2, UNK
     Route: 042
     Dates: start: 20091013, end: 20091013
  2. VELCADE [Suspect]
     Dosage: 1.7 MG/M2, UNK
     Route: 042
     Dates: start: 20091016
  3. LEUKERAN [Suspect]

REACTIONS (3)
  - ATRIAL FIBRILLATION [None]
  - PNEUMONIA [None]
  - RENAL FAILURE ACUTE [None]
